FAERS Safety Report 4825043-5 (Version None)
Quarter: 2005Q4

REPORT INFORMATION
  Report Type: 
  Country: None (occurrence: None)
  Receive Date: 20051109
  Receipt Date: 20051109
  Transmission Date: 20060501
  Serious: Yes (Other)
  Sender: FDA-Public Use
  Company Number: None

PATIENT
  Age: 65 Year
  Sex: Female
  Weight: 122.4712 kg

DRUGS (1)
  1. DURAGESIC-100 [Suspect]
     Indication: SPINAL COLUMN STENOSIS
     Dosage: 100 MCG  Q 72 HOURS  TRANSDERM
     Route: 062
     Dates: start: 20030101, end: 20051108

REACTIONS (5)
  - AGITATION [None]
  - DRUG EFFECT INCREASED [None]
  - DRUG WITHDRAWAL SYNDROME [None]
  - FORMICATION [None]
  - INSOMNIA [None]
